FAERS Safety Report 23623698 (Version 1)
Quarter: 2024Q1

REPORT INFORMATION
  Report Type: Spontaneous
  Country: US (occurrence: None)
  Receive Date: 20240312
  Receipt Date: 20240312
  Transmission Date: 20240410
  Serious: Yes (Other)
  Sender: FDA-Public Use
  Company Number: None

PATIENT
  Age: 51 Year
  Sex: Female
  Weight: 72 kg

DRUGS (5)
  1. KEYTRUDA [Suspect]
     Active Substance: PEMBROLIZUMAB
     Indication: Intentional product use issue
     Dosage: OTHER FREQUENCY : Q3W;?OTHER ROUTE : INFUSION;?
     Route: 050
     Dates: start: 20221012, end: 20230712
  2. BUDESONIDE [Concomitant]
     Active Substance: BUDESONIDE
  3. VITAMIN C [Concomitant]
     Active Substance: ASCORBIC ACID
  4. VITAMIN D [Concomitant]
     Active Substance: VITAMIN D NOS
  5. ZINC [Concomitant]
     Active Substance: PYRITHIONE ZINC\ZINC\ZINC CHLORIDE

REACTIONS (1)
  - Colitis [None]

NARRATIVE: CASE EVENT DATE: 20230703
